FAERS Safety Report 5252773-6 (Version None)
Quarter: 2007Q1

REPORT INFORMATION
  Report Type: 
  Country: None (occurrence: None)
  Receive Date: 20070301
  Receipt Date: 20061129
  Transmission Date: 20070707
  Serious: No
  Sender: FDA-Public Use
  Company Number: US-GLAXOSMITHKLINE-A0629474A

PATIENT
  Sex: Male

DRUGS (2)
  1. LAMICTAL [Suspect]
     Route: 048
     Dates: start: 20020101
  2. KEPPRA [Concomitant]

REACTIONS (3)
  - COORDINATION ABNORMAL [None]
  - DIPLOPIA [None]
  - VISION BLURRED [None]
